FAERS Safety Report 22115545 (Version 1)
Quarter: 2023Q1

REPORT INFORMATION
  Report Type: Spontaneous
  Country: US (occurrence: None)
  Receive Date: 20230319
  Receipt Date: 20230319
  Transmission Date: 20230417
  Serious: No
  Sender: FDA-Public Use
  Company Number: None

PATIENT
  Sex: Female
  Weight: 48.99 kg

DRUGS (7)
  1. LENALIDOMIDE [Suspect]
     Active Substance: LENALIDOMIDE
     Indication: Plasma cell myeloma
     Dosage: FREQUENCY : DAILY;?
     Route: 048
     Dates: start: 20221101, end: 20230309
  2. ACYCLOVIR [Concomitant]
  3. ASPIRIN [Concomitant]
  4. DEXAMETHASONE [Concomitant]
  5. ONDANSETRON [Concomitant]
  6. SINGULAIR [Concomitant]
  7. FIDAXOMICIN [Concomitant]

REACTIONS (1)
  - Clostridium difficile infection [None]
